FAERS Safety Report 7278432-6 (Version None)
Quarter: 2011Q1

REPORT INFORMATION
  Report Type: 
  Country: None (occurrence: None)
  Receive Date: 20110207
  Receipt Date: 20110203
  Transmission Date: 20110831
  Serious: Yes (Hospitalization)
  Sender: FDA-Public Use
  Company Number: FR-ABBOTT-10P-056-0636539-00

PATIENT
  Sex: Female
  Weight: 70 kg

DRUGS (7)
  1. COTAREG [Concomitant]
     Indication: PRODUCT USED FOR UNKNOWN INDICATION
     Dosage: 160/25 MG
  2. HUMIRA [Suspect]
     Indication: RHEUMATOID ARTHRITIS
     Route: 058
     Dates: start: 20070405
  3. HUMIRA [Suspect]
     Route: 058
  4. ZOLTUM [Concomitant]
     Indication: PRODUCT USED FOR UNKNOWN INDICATION
  5. SULFARLEM [Concomitant]
     Indication: PRODUCT USED FOR UNKNOWN INDICATION
  6. IPERTEN [Concomitant]
     Indication: PRODUCT USED FOR UNKNOWN INDICATION
  7. EZETROL [Concomitant]
     Indication: PRODUCT USED FOR UNKNOWN INDICATION

REACTIONS (3)
  - STAPHYLOCOCCAL INFECTION [None]
  - PUSTULAR PSORIASIS [None]
  - EOSINOPHILIA [None]
